FAERS Safety Report 18931179 (Version 1)
Quarter: 2021Q1

REPORT INFORMATION
  Report Type: Report from Study
  Country: None (occurrence: US)
  Receive Date: 20210224
  Receipt Date: 20210224
  Transmission Date: 20210420
  Serious: Yes (Hospitalization, Other)
  Sender: FDA-Public Use
  Company Number: US-ABBVIE-21K-163-3741578-00

PATIENT
  Age: 54 Year
  Sex: Female

DRUGS (3)
  1. HUMIRA [Suspect]
     Active Substance: ADALIMUMAB
     Indication: RHEUMATOID ARTHRITIS
     Route: 058
     Dates: start: 201910, end: 201912
  2. HUMIRA [Suspect]
     Active Substance: ADALIMUMAB
     Route: 058
     Dates: start: 202001, end: 202012
  3. HUMIRA [Suspect]
     Active Substance: ADALIMUMAB
     Route: 058
     Dates: start: 20210102

REACTIONS (13)
  - Rotator cuff repair [Recovering/Resolving]
  - Rotator cuff syndrome [Recovering/Resolving]
  - Foot deformity [Recovering/Resolving]
  - Gastrooesophageal reflux disease [Unknown]
  - Pain [Recovering/Resolving]
  - Intervertebral disc degeneration [Recovered/Resolved]
  - Exostosis [Recovering/Resolving]
  - Peroneal nerve palsy [Recovering/Resolving]
  - Hypertension [Unknown]
  - Tendon rupture [Recovering/Resolving]
  - Blood cholesterol increased [Unknown]
  - Macular degeneration [Unknown]
  - Depression [Unknown]

NARRATIVE: CASE EVENT DATE: 201912
